FAERS Safety Report 6773392-6 (Version None)
Quarter: 2010Q2

REPORT INFORMATION
  Report Type: 
  Country: None (occurrence: None)
  Receive Date: 20100611
  Receipt Date: 20100603
  Transmission Date: 20101027
  Serious: Yes (Death, Hospitalization, Other)
  Sender: FDA-Public Use
  Company Number: 2009US003973

PATIENT
  Age: 4 Year
  Sex: Female

DRUGS (4)
  1. TACROLIMUS [Suspect]
     Indication: DERMATITIS ATOPIC
     Dosage: 0.03 %, BID, TOPICAL
     Route: 061
     Dates: start: 20090105, end: 20100101
  2. SENNA (SENNA ALEXANDRINA) [Concomitant]
  3. GLYCOPYRROLATE (GLYCOPYRRONIUM) [Concomitant]
  4. PEPCID [Concomitant]

REACTIONS (8)
  - CHOLESTEATOMA [None]
  - COUGH [None]
  - DISEASE RECURRENCE [None]
  - EPENDYMOMA [None]
  - METASTASES TO BONE [None]
  - METASTASES TO CENTRAL NERVOUS SYSTEM [None]
  - MUSCULOSKELETAL STIFFNESS [None]
  - RADIATION NECROSIS [None]
